FAERS Safety Report 6676131-2 (Version None)
Quarter: 2010Q2

REPORT INFORMATION
  Report Type: 
  Country: None (occurrence: None)
  Receive Date: 20100412
  Receipt Date: 20100331
  Transmission Date: 20101027
  Serious: Yes (Life-Threatening, Hospitalization)
  Sender: FDA-Public Use
  Company Number: JP-PFIZER INC-2010028529

PATIENT
  Age: 52 Year
  Sex: Male

DRUGS (4)
  1. ZITHROMAC SR [Suspect]
     Indication: URINARY TRACT INFECTION
     Dosage: 2 G, SINGLE
     Route: 048
     Dates: start: 20100206, end: 20100206
  2. MINOCYCLINE HYDROCHLORIDE [Suspect]
     Indication: URINARY TRACT INFECTION
     Dosage: 100 MG, 2X/DAY
     Route: 048
     Dates: start: 20100213, end: 20100302
  3. ASPIRIN [Suspect]
     Indication: NASOPHARYNGITIS
     Dosage: 3G/DAY
     Route: 048
     Dates: start: 20100216, end: 20100219
  4. PRONASE [Suspect]
     Indication: NASOPHARYNGITIS
     Dosage: 54000 IU, 3X/DAY
     Route: 048
     Dates: start: 20100216, end: 20100219

REACTIONS (1)
  - EOSINOPHILIC PNEUMONIA [None]
